FAERS Safety Report 10089760 (Version 2)
Quarter: 2014Q2

REPORT INFORMATION
  Report Type: Spontaneous
  Country: US (occurrence: US)
  Receive Date: 20140421
  Receipt Date: 20140603
  Transmission Date: 20141212
  Serious: Yes (Other)
  Sender: FDA-Public Use
  Company Number: US-PFIZER INC-2014109915

PATIENT
  Age: 73 Year
  Sex: Female

DRUGS (1)
  1. LYRICA [Suspect]
     Dosage: 150 MG, UNK

REACTIONS (5)
  - Activities of daily living impaired [Unknown]
  - Gait disturbance [Unknown]
  - Pain [Unknown]
  - Dyspnoea [Unknown]
  - Feeling abnormal [Unknown]
